FAERS Safety Report 7676179-5 (Version None)
Quarter: 2011Q3

REPORT INFORMATION
  Report Type: 
  Country: None (occurrence: None)
  Receive Date: 20110811
  Receipt Date: 20110802
  Transmission Date: 20111222
  Serious: Yes (Other)
  Sender: FDA-Public Use
  Company Number: US-JNJFOC-20110800656

PATIENT
  Sex: Female
  Weight: 58.97 kg

DRUGS (11)
  1. PLAVIX [Concomitant]
     Indication: ANTICOAGULANT THERAPY
     Route: 048
     Dates: start: 20050101
  2. FENTANYL [Suspect]
     Indication: ARTHRALGIA
     Route: 062
     Dates: start: 20110401
  3. BABY ASPRIN [Concomitant]
     Indication: CARDIAC DISORDER
     Route: 048
  4. FENTANYL [Suspect]
     Route: 062
     Dates: start: 20110401
  5. FENTANYL [Suspect]
     Dosage: EVERY 48-72 HOURS
     Route: 062
  6. FENTANYL [Suspect]
     Route: 062
     Dates: start: 20060101
  7. FENTANYL [Suspect]
     Indication: PAIN IN EXTREMITY
     Dosage: EVERY 48-72 HOURS
     Route: 062
  8. PREMARIN [Concomitant]
     Indication: HORMONE THERAPY
     Route: 048
     Dates: start: 19750101
  9. FENTANYL [Suspect]
     Route: 062
     Dates: start: 20060101
  10. UNKNOWN MEDICATION [Concomitant]
     Indication: BLOOD PRESSURE
     Route: 065
  11. WELCHOL [Concomitant]
     Indication: BLOOD CHOLESTEROL INCREASED
     Route: 048
     Dates: start: 20050101

REACTIONS (5)
  - DRUG ADMINISTERED AT INAPPROPRIATE SITE [None]
  - DERMATITIS CONTACT [None]
  - WITHDRAWAL SYNDROME [None]
  - PRODUCT QUALITY ISSUE [None]
  - DEPENDENCE [None]
